FAERS Safety Report 13842447 (Version 1)
Quarter: 2017Q3

REPORT INFORMATION
  Report Type: Spontaneous
  Country: CZ (occurrence: CZ)
  Receive Date: 20170808
  Receipt Date: 20170808
  Transmission Date: 20171127
  Serious: Yes (Life-Threatening, Hospitalization)
  Sender: FDA-Public Use
  Company Number: CZ-ALLERGAN-1733418US

PATIENT
  Age: 63 Year
  Sex: Female

DRUGS (6)
  1. HUMALOG [Suspect]
     Active Substance: INSULIN LISPRO
     Indication: SUICIDE ATTEMPT
     Dosage: OVERDOSE: 2 X 200 UG
     Route: 065
     Dates: start: 20141231, end: 20141231
  2. ESCITALOPRAM OXALATE - BP [Suspect]
     Active Substance: ESCITALOPRAM OXALATE
     Indication: SUICIDE ATTEMPT
     Dosage: OVERDOSE: 20X28 TABLET
     Route: 065
     Dates: start: 20141231, end: 20141231
  3. ROBITUSSIN (GUAIFENESIN) [Suspect]
     Active Substance: GUAIFENESIN
     Indication: SUICIDE ATTEMPT
     Dosage: OVERDOSE: 100 ML = 150 MG
     Route: 065
     Dates: start: 20141231, end: 20141231
  4. SIOFOR [Suspect]
     Active Substance: METFORMIN HYDROCHLORIDE
     Indication: SUICIDE ATTEMPT
     Dosage: 500MG X 10TIMES
     Route: 065
     Dates: start: 20141231, end: 20141231
  5. SPIROPENT [Suspect]
     Active Substance: CLENBUTEROL HYDROCHLORIDE
     Indication: SUICIDE ATTEMPT
     Dosage: OVERDOSE:500 X 10 TABLET
     Route: 065
     Dates: start: 20141231, end: 20141231
  6. METFORMIN [Suspect]
     Active Substance: METFORMIN HYDROCHLORIDE
     Indication: SUICIDE ATTEMPT
     Dosage: OVERDOSE: 500X20
     Route: 065
     Dates: start: 20141231, end: 20141231

REACTIONS (3)
  - Intentional product misuse [Unknown]
  - Suicide attempt [Unknown]
  - Overdose [Unknown]

NARRATIVE: CASE EVENT DATE: 20141231
